FAERS Safety Report 15573508 (Version 1)
Quarter: 2018Q4

REPORT INFORMATION
  Report Type: Spontaneous
  Country: US (occurrence: US)
  Receive Date: 20181101
  Receipt Date: 20181101
  Transmission Date: 20190205
  Serious: No
  Sender: FDA-Public Use
  Company Number: US-ASTRAZENECA-2018SF30991

PATIENT
  Age: 21658 Day
  Sex: Male
  Weight: 98.9 kg

DRUGS (4)
  1. LISINOPRIL. [Suspect]
     Active Substance: LISINOPRIL
     Indication: RENAL DISORDER
     Route: 048
  2. ATORVASTATIN [Concomitant]
     Active Substance: ATORVASTATIN
     Route: 048
  3. BYDUREON BCISE [Suspect]
     Active Substance: EXENATIDE
     Indication: TYPE 2 DIABETES MELLITUS
     Route: 058
  4. EZETIMIBE. [Concomitant]
     Active Substance: EZETIMIBE
     Indication: RENAL DISORDER
     Route: 048

REACTIONS (3)
  - Injection site mass [Recovering/Resolving]
  - Blood glucose fluctuation [Recovering/Resolving]
  - Limb discomfort [Recovered/Resolved]

NARRATIVE: CASE EVENT DATE: 20180929
